FAERS Safety Report 7214305-2 (Version None)
Quarter: 2011Q1

REPORT INFORMATION
  Report Type: 
  Country: None (occurrence: None)
  Receive Date: 20110107
  Receipt Date: 20101228
  Transmission Date: 20110831
  Serious: Yes (Death, Other)
  Sender: FDA-Public Use
  Company Number: FR-CELGENEUS-056-20785-11010002

PATIENT

DRUGS (2)
  1. THALIDOMIDE [Suspect]
     Indication: SCLEROEDEMA
  2. DEXAMETHASONE [Suspect]
     Route: 065

REACTIONS (4)
  - NEUROPATHY PERIPHERAL [None]
  - MULTIPLE MYELOMA [None]
  - ENCEPHALOPATHY [None]
  - INTERSTITIAL LUNG DISEASE [None]
